FAERS Safety Report 25302188 (Version 2)
Quarter: 2025Q2

REPORT INFORMATION
  Report Type: Spontaneous
  Country: CA (occurrence: CA)
  Receive Date: 20250512
  Receipt Date: 20250521
  Transmission Date: 20250717
  Serious: Yes (Life-Threatening)
  Sender: BAUSCH AND LOMB
  Company Number: CA-MLMSERVICE-20240722-PI139384-00059-1

PATIENT
  Age: 59 Year
  Sex: Male

DRUGS (6)
  1. AZATHIOPRINE [Suspect]
     Active Substance: AZATHIOPRINE
     Indication: Crohn^s disease
     Route: 048
  2. AZATHIOPRINE [Suspect]
     Active Substance: AZATHIOPRINE
     Route: 048
  3. AZATHIOPRINE [Suspect]
     Active Substance: AZATHIOPRINE
     Route: 048
  4. BUDESONIDE [Concomitant]
     Active Substance: BUDESONIDE
     Indication: Crohn^s disease
     Route: 048
  5. TAMSULOSIN [Concomitant]
     Active Substance: TAMSULOSIN
     Indication: Crohn^s disease
     Route: 048
  6. FERROUS GLUCONATE [Concomitant]
     Active Substance: FERROUS GLUCONATE
     Indication: Crohn^s disease
     Route: 048

REACTIONS (5)
  - Distributive shock [Recovering/Resolving]
  - Acute myocardial infarction [Recovering/Resolving]
  - Acute kidney injury [Recovering/Resolving]
  - Neutrophilic dermatosis [Recovered/Resolved]
  - Drug reaction with eosinophilia and systemic symptoms [Recovered/Resolved]
